FAERS Safety Report 8575397-1 (Version None)
Quarter: 2012Q3

REPORT INFORMATION
  Report Type: 
  Country: None (occurrence: None)
  Receive Date: 20120807
  Receipt Date: 20120801
  Transmission Date: 20120928
  Serious: No
  Sender: FDA-Public Use
  Company Number: US-PFIZER INC-2012187690

PATIENT
  Age: 57 Year
  Sex: Male
  Weight: 81.633 kg

DRUGS (6)
  1. PROZAC [Concomitant]
     Indication: DEPRESSION
     Dosage: 120 MG, DAILY
  2. EFFEXOR XR [Concomitant]
     Indication: DEPRESSION
     Dosage: 175 MG, DAILY
  3. ALPRAZOLAM [Suspect]
     Indication: ANXIETY
     Dosage: 2 MG, 4X/DAY
     Route: 048
     Dates: start: 20120701, end: 20120701
  4. XANAX [Suspect]
     Indication: ANXIETY
     Dosage: 2 MG, 4X/DAY
     Route: 048
  5. XANAX [Suspect]
     Indication: PANIC ATTACK
     Dosage: 2 MG, 4X/DAY
     Route: 048
     Dates: start: 20120801
  6. ALPRAZOLAM [Suspect]
     Indication: PANIC ATTACK

REACTIONS (8)
  - DECREASED APPETITE [None]
  - FOREIGN BODY [None]
  - NAUSEA [None]
  - DYSPHAGIA [None]
  - DRUG INEFFECTIVE [None]
  - DIZZINESS [None]
  - PRODUCT FORMULATION ISSUE [None]
  - IRRITABILITY [None]
